FAERS Safety Report 24402766 (Version 1)
Quarter: 2024Q4

REPORT INFORMATION
  Report Type: Spontaneous
  Country: GB (occurrence: GB)
  Receive Date: 20241007
  Receipt Date: 20241007
  Transmission Date: 20250115
  Serious: Yes (Other)
  Sender: TEVA
  Company Number: None

PATIENT
  Sex: Male

DRUGS (1)
  1. IMATINIB [Suspect]
     Active Substance: IMATINIB
     Indication: Cardiotoxicity
     Route: 065
     Dates: start: 20240919, end: 20240921

REACTIONS (5)
  - Cardiac failure [Unknown]
  - Decreased appetite [Unknown]
  - Aortic stenosis [Unknown]
  - Nausea [Unknown]
  - Cardiotoxicity [Unknown]
